FAERS Safety Report 4785307-0 (Version None)
Quarter: 2005Q3

REPORT INFORMATION
  Report Type: 
  Country: None (occurrence: None)
  Receive Date: 20050929
  Receipt Date: 20050916
  Transmission Date: 20060218
  Serious: Yes (Life-Threatening, Hospitalization)
  Sender: FDA-Public Use
  Company Number: 2005130684

PATIENT
  Age: 57 Year
  Sex: Male

DRUGS (6)
  1. ZELDOX (CAPSULES) (ZIPRASIDONE) [Suspect]
     Indication: DELUSION
     Dosage: 80 MG (1 IN 1 D), ORAL
     Route: 048
     Dates: start: 20030101
  2. ZELDOX (CAPSULES) (ZIPRASIDONE) [Suspect]
     Indication: DEPRESSION
     Dosage: 80 MG (1 IN 1 D), ORAL
     Route: 048
     Dates: start: 20030101
  3. ZOLOFT [Suspect]
     Indication: DELUSION
     Dosage: 200 MG (1 IN 1 D), ORAL
     Route: 048
     Dates: start: 20030101
  4. ZOLOFT [Suspect]
     Indication: DEPRESSION
     Dosage: 200 MG (1 IN 1 D), ORAL
     Route: 048
     Dates: start: 20030101
  5. ZYPREXA [Suspect]
     Indication: DELUSION
     Dosage: 20 MG (1 IN 1 D), ORAL
     Route: 048
     Dates: start: 20030101
  6. ZYPREXA [Suspect]
     Indication: DEPRESSION
     Dosage: 20 MG (1 IN 1 D), ORAL
     Route: 048
     Dates: start: 20030101

REACTIONS (9)
  - DEPRESSIVE DELUSION [None]
  - FALL [None]
  - GAIT DISTURBANCE [None]
  - HEADACHE [None]
  - HYPERTENSION [None]
  - INJURY [None]
  - POLYTRAUMATISM [None]
  - SUICIDE ATTEMPT [None]
  - VISUAL DISTURBANCE [None]
